FAERS Safety Report 11292739 (Version 1)
Quarter: 2015Q3

REPORT INFORMATION
  Report Type: Spontaneous
  Country: DE (occurrence: DE)
  Receive Date: 20150722
  Receipt Date: 20150722
  Transmission Date: 20151125
  Serious: Yes (Other)
  Sender: FDA-Public Use
  Company Number: DE-BAXTER-2015BAX036594

PATIENT
  Sex: Male
  Weight: 72 kg

DRUGS (2)
  1. TISSEEL [Suspect]
     Active Substance: FIBRINOGEN HUMAN\THROMBIN HUMAN
     Indication: HAEMORRHAGE
     Dosage: 16 TIMES APPLIED
     Route: 065
     Dates: start: 20150521, end: 20150626
  2. TISSEEL [Suspect]
     Active Substance: FIBRINOGEN HUMAN\THROMBIN HUMAN
     Indication: VASCULAR PSEUDOANEURYSM

REACTIONS (1)
  - Drug ineffective [Not Recovered/Not Resolved]
